FAERS Safety Report 14112018 (Version 2)
Quarter: 2018Q1

REPORT INFORMATION
  Report Type: Report from Study
  Country: JP (occurrence: JP)
  Receive Date: 20171020
  Receipt Date: 20180209
  Transmission Date: 20180508
  Serious: Yes (Death, Other)
  Sender: FDA-Public Use
  Company Number: JP-MYLANLABS-2017M1065904

PATIENT
  Age: 5 Decade
  Sex: Male

DRUGS (4)
  1. RANIMUSTINE [Suspect]
     Active Substance: RANIMUSTINE
     Indication: BONE MARROW CONDITIONING REGIMEN
     Route: 065
  2. CYCLOPHOSPHAMIDE. [Suspect]
     Active Substance: CYCLOPHOSPHAMIDE
     Indication: BONE MARROW CONDITIONING REGIMEN
     Route: 065
  3. ETOPOSIDE. [Suspect]
     Active Substance: ETOPOSIDE
     Indication: BONE MARROW CONDITIONING REGIMEN
     Route: 065
  4. CARBOPLATIN. [Suspect]
     Active Substance: CARBOPLATIN
     Indication: BONE MARROW CONDITIONING REGIMEN
     Route: 065

REACTIONS (1)
  - Acute myeloid leukaemia [Fatal]
